FAERS Safety Report 10257569 (Version 2)
Quarter: 2014Q3

REPORT INFORMATION
  Report Type: Report from Study
  Country: IL (occurrence: IL)
  Receive Date: 20140625
  Receipt Date: 20140707
  Transmission Date: 20150326
  Serious: Yes (Hospitalization)
  Sender: FDA-Public Use
  Company Number: PHHY2014IL076972

PATIENT
  Sex: Male

DRUGS (2)
  1. SANDOSTATIN LAR DEPOT [Suspect]
     Active Substance: OCTREOTIDE ACETATE
     Indication: CARCINOID TUMOUR
     Dosage: 60 MG, Q 28 DAYS
     Route: 030
     Dates: start: 20110414
  2. SANDOSTATIN LAR DEPOT [Suspect]
     Active Substance: OCTREOTIDE ACETATE
     Indication: THYMOMA

REACTIONS (5)
  - Neurological symptom [Unknown]
  - Speech disorder [Not Recovered/Not Resolved]
  - Myasthenia gravis [Recovering/Resolving]
  - Dysphagia [Recovering/Resolving]
  - Dysphonia [Not Recovered/Not Resolved]
